FAERS Safety Report 8493215-7 (Version None)
Quarter: 2012Q3

REPORT INFORMATION
  Report Type: 
  Country: None (occurrence: None)
  Receive Date: 20120706
  Receipt Date: 20120625
  Transmission Date: 20120928
  Serious: No
  Sender: FDA-Public Use
  Company Number: US-B.I. PHARMACEUTICALS,INC./RIDGEFIELD-2012-BP-09689BP

PATIENT
  Sex: Female

DRUGS (17)
  1. LOVASTATIN [Concomitant]
     Indication: BLOOD CHOLESTEROL INCREASED
     Dosage: 40 MG
     Route: 042
     Dates: start: 20080101
  2. FISH OIL [Concomitant]
     Indication: ROUTINE HEALTH MAINTENANCE
     Dosage: 750 MG
     Route: 048
     Dates: start: 20120407
  3. FOLIC ACID [Concomitant]
     Indication: ROUTINE HEALTH MAINTENANCE
     Dosage: 400 MCG
     Route: 048
     Dates: start: 20090101
  4. ASCORBIC ACID [Concomitant]
     Indication: ROUTINE HEALTH MAINTENANCE
     Dosage: 1000 MG
     Route: 048
     Dates: start: 19820101
  5. FLUOCINONIDE [Concomitant]
     Indication: FOLLICULITIS
     Route: 061
     Dates: start: 20060101
  6. POTASSIUM [Concomitant]
  7. VITAMIN B COMPLEX CAP [Concomitant]
     Indication: ROUTINE HEALTH MAINTENANCE
     Dosage: 1 NR
     Route: 048
     Dates: start: 20100101
  8. VITAMIN D [Concomitant]
     Indication: ROUTINE HEALTH MAINTENANCE
     Dosage: 5000 U
     Route: 048
     Dates: start: 20110101
  9. PRADAXA [Suspect]
     Indication: ATRIAL FIBRILLATION
     Dosage: 300 MG
     Route: 048
     Dates: start: 20120425
  10. CALCIUM [Concomitant]
     Indication: ROUTINE HEALTH MAINTENANCE
     Dosage: 750 MG
     Route: 048
     Dates: start: 20060101
  11. GAS EX [Concomitant]
     Indication: FLATULENCE
     Route: 048
     Dates: start: 20120102
  12. POTASSIUM [Concomitant]
     Indication: MUSCLE SPASMS
     Dosage: 550 MG
     Route: 048
     Dates: start: 20120102
  13. AMITRIPTYLINE HCL [Concomitant]
     Indication: INSOMNIA
     Dosage: 5 MG
     Route: 048
     Dates: start: 20110101
  14. IMODIUM [Concomitant]
     Indication: DIARRHOEA
     Route: 048
     Dates: start: 20060101
  15. AMITRIPTYLINE HCL [Concomitant]
     Indication: HYPERTONIC BLADDER
  16. MULTI-VITAMIN [Concomitant]
     Indication: ROUTINE HEALTH MAINTENANCE
     Dosage: 1 NR
     Route: 048
     Dates: start: 19820101
  17. AMOXICILLIN [Concomitant]
     Indication: MITRAL VALVE PROLAPSE
     Dosage: 2000 MG
     Route: 048
     Dates: start: 19920101

REACTIONS (5)
  - ABDOMINAL PAIN UPPER [None]
  - FLATULENCE [None]
  - ATRIAL FIBRILLATION [None]
  - FATIGUE [None]
  - BLOOD PRESSURE ABNORMAL [None]
